FAERS Safety Report 8385991-9 (Version None)
Quarter: 2012Q2

REPORT INFORMATION
  Report Type: 
  Country: None (occurrence: None)
  Receive Date: 20120525
  Receipt Date: 20120518
  Transmission Date: 20120825
  Serious: Yes (Hospitalization)
  Sender: FDA-Public Use
  Company Number: 2012SP001461

PATIENT
  Age: 43 Year
  Sex: 0

DRUGS (6)
  1. COGENTIN [Concomitant]
     Indication: SCHIZOPHRENIA
  2. LISINOPRIL [Concomitant]
     Indication: HYPERTENSION
  3. ATIVAN [Concomitant]
     Indication: PRODUCT USED FOR UNKNOWN INDICATION
  4. HYDROCHLOROTHIAZIDE [Concomitant]
     Indication: HYPERTENSION
     Dates: start: 20120101
  5. LATUDA [Suspect]
     Indication: SCHIZOPHRENIA
     Route: 048
     Dates: start: 20120301
  6. PROLIXIN [Concomitant]
     Indication: SCHIZOPHRENIA

REACTIONS (3)
  - MENTAL STATUS CHANGES [None]
  - HYPONATRAEMIA [None]
  - HYPERTENSION [None]
